FAERS Safety Report 8812434 (Version 2)
Quarter: 2014Q3

REPORT INFORMATION
  Report Type: Report from Study
  Country: US (occurrence: US)
  Receive Date: 20120927
  Receipt Date: 20140903
  Transmission Date: 20150326
  Serious: Yes (Death, Other)
  Sender: FDA-Public Use
  Company Number: US-ROCHE-1125001

PATIENT
  Age: 62 Year
  Sex: Female

DRUGS (6)
  1. CAMPTOSAR [Concomitant]
     Active Substance: IRINOTECAN HYDROCHLORIDE
     Indication: RECTOSIGMOID CANCER
  2. AVASTIN [Suspect]
     Active Substance: BEVACIZUMAB
     Indication: COLON CANCER
  3. AVASTIN [Suspect]
     Active Substance: BEVACIZUMAB
     Indication: GASTRIC CANCER
  4. AVASTIN [Suspect]
     Active Substance: BEVACIZUMAB
     Indication: MALIGNANT ANORECTAL NEOPLASM
  5. AVASTIN [Suspect]
     Active Substance: BEVACIZUMAB
     Indication: RECTOSIGMOID CANCER
     Route: 065
     Dates: start: 20051026
  6. AVASTIN [Suspect]
     Active Substance: BEVACIZUMAB
     Indication: COLORECTAL CANCER

REACTIONS (6)
  - Confusional state [Unknown]
  - Abdominal mass [Unknown]
  - Disease progression [Unknown]
  - Somnolence [Unknown]
  - Death [Fatal]
  - Metastases to central nervous system [Unknown]

NARRATIVE: CASE EVENT DATE: 20060613
